FAERS Safety Report 17848031 (Version 3)
Quarter: 2021Q1

REPORT INFORMATION
  Report Type: Spontaneous
  Country: US (occurrence: US)
  Receive Date: 20200601
  Receipt Date: 20210111
  Transmission Date: 20210419
  Serious: No
  Sender: FDA-Public Use
  Company Number: US-009507513-2005USA005836

PATIENT
  Sex: Female

DRUGS (4)
  1. ASMANEX [Suspect]
     Active Substance: MOMETASONE FUROATE
     Dosage: INHALE ONE PUFF DAILY
     Route: 055
     Dates: start: 20200514
  2. ASMANEX [Suspect]
     Active Substance: MOMETASONE FUROATE
     Dosage: ONE PUFF DAILY
     Route: 055
     Dates: start: 201912
  3. ASMANEX [Suspect]
     Active Substance: MOMETASONE FUROATE
     Dosage: INHALE ONE PUFF DAILY
     Route: 055
     Dates: start: 20200410
  4. ASMANEX [Suspect]
     Active Substance: MOMETASONE FUROATE
     Dosage: 1 PUFF EVERY OTHER DAY
     Dates: start: 20201220

REACTIONS (4)
  - Product use issue [Unknown]
  - Product quality issue [Unknown]
  - Poor quality product administered [Unknown]
  - No adverse event [Unknown]

NARRATIVE: CASE EVENT DATE: 20201220
